FAERS Safety Report 6619870-1 (Version None)
Quarter: 2010Q1

REPORT INFORMATION
  Report Type: 
  Country: None (occurrence: None)
  Receive Date: 20100309
  Receipt Date: 20100225
  Transmission Date: 20100710
  Serious: Yes (Other)
  Sender: FDA-Public Use
  Company Number: US-GENZYME-CERZ-1001189

PATIENT

DRUGS (5)
  1. CEREZYME [Suspect]
     Indication: GAUCHER'S DISEASE
     Dosage: 60 U/KG, Q2W
     Route: 042
     Dates: start: 20090601
  2. CEREZYME [Suspect]
     Dosage: UNK
     Route: 042
     Dates: start: 19970701, end: 20090101
  3. DOLOPHINE HCL [Concomitant]
     Indication: PAIN
     Dosage: 170 MG, QD
  4. CRESTOR [Concomitant]
     Indication: DRUG USE FOR UNKNOWN INDICATION
     Dosage: 6 MG, QD
  5. XANAX [Concomitant]
     Indication: ANXIETY
     Dosage: 5 MG, QD

REACTIONS (1)
  - CHRONIC LYMPHOCYTIC LEUKAEMIA [None]
